FAERS Safety Report 6155400-9 (Version None)
Quarter: 2009Q2

REPORT INFORMATION
  Report Type: 
  Country: None (occurrence: None)
  Receive Date: 20090415
  Receipt Date: 20090406
  Transmission Date: 20091009
  Serious: Yes (Life-Threatening, Disabling, Other)
  Sender: FDA-Public Use
  Company Number: JP-BAYER-200911044BYL

PATIENT
  Age: 39 Year
  Sex: Female
  Weight: 57 kg

DRUGS (35)
  1. FLUDARA [Suspect]
     Indication: ACUTE MYELOID LEUKAEMIA
     Dosage: AS USED: 40 MG  UNIT DOSE: 50 MG
     Route: 042
     Dates: start: 20081031, end: 20081104
  2. ALKERAN [Suspect]
     Indication: ACUTE MYELOID LEUKAEMIA
     Dosage: AS USED: 110 MG
     Route: 042
     Dates: start: 20081103, end: 20081104
  3. PROGRAF [Suspect]
     Indication: PROPHYLAXIS AGAINST GRAFT VERSUS HOST DISEASE
     Route: 065
     Dates: start: 20081105, end: 20090216
  4. SEROTONE [Concomitant]
     Route: 042
     Dates: start: 20081103, end: 20081104
  5. LASIX [Concomitant]
     Route: 065
     Dates: start: 20081103, end: 20081117
  6. MAXIPIME [Concomitant]
     Indication: INFECTION
     Route: 065
     Dates: start: 20081104, end: 20081110
  7. AMIKACIN SULFATE [Concomitant]
     Indication: INFECTION
     Route: 041
     Dates: start: 20081104, end: 20081113
  8. NOVAMIN [Concomitant]
     Route: 065
     Dates: start: 20081105, end: 20081201
  9. SOLU-MEDROL [Concomitant]
     Route: 065
     Dates: start: 20081106, end: 20081106
  10. METHOTREXATE [Concomitant]
     Indication: PROPHYLAXIS AGAINST GRAFT VERSUS HOST DISEASE
     Dosage: 15MG, 10MG
     Route: 065
     Dates: start: 20081107, end: 20081112
  11. ORGARAN [Concomitant]
     Route: 042
     Dates: start: 20081107, end: 20080101
  12. INOVAN [Concomitant]
     Route: 065
     Dates: start: 20081107, end: 20081109
  13. FENTANYL [Concomitant]
     Route: 065
     Dates: start: 20081110, end: 20080101
  14. FINIBAX [Concomitant]
     Indication: INFECTION
     Route: 065
     Dates: start: 20081110, end: 20081124
  15. SOLDACTONE [Concomitant]
     Route: 065
     Dates: start: 20081110, end: 20081117
  16. FUNGUARD [Concomitant]
     Indication: INFECTION
     Dosage: 50-300MG/DAY
     Route: 041
     Dates: start: 20081110, end: 20090305
  17. DOBUPUM [Concomitant]
     Route: 065
     Dates: start: 20081111, end: 20081117
  18. GRAN [Concomitant]
     Indication: INFECTION PROPHYLAXIS
     Route: 065
     Dates: start: 20081111, end: 20081218
  19. NEUART [Concomitant]
     Route: 042
     Dates: start: 20081111, end: 20081113
  20. OMEPRAL [Concomitant]
     Route: 042
     Dates: start: 20081112, end: 20081217
  21. HANP [Concomitant]
     Route: 042
     Dates: start: 20081112, end: 20081117
  22. VANCOMYCIN HCL [Concomitant]
     Indication: INFECTION
     Route: 065
     Dates: start: 20081113, end: 20081126
  23. VANCOMYCIN HCL [Concomitant]
     Route: 065
     Dates: start: 20081210
  24. GLOVENIN-I [Concomitant]
     Indication: INFECTION
     Route: 042
     Dates: start: 20081118, end: 20081120
  25. PASIL [Concomitant]
     Indication: INFECTION
     Route: 065
     Dates: start: 20081125, end: 20081127
  26. ZYVOX [Concomitant]
     Indication: INFECTION
     Route: 065
     Dates: start: 20081127
  27. FIRSTCIN [Concomitant]
     Indication: INFECTION
     Route: 041
     Dates: start: 20081127, end: 20081209
  28. TARGOCID [Concomitant]
     Indication: INFECTION
     Route: 042
     Dates: start: 20081201, end: 20081209
  29. VFEND [Concomitant]
     Indication: INFECTION
     Route: 042
     Dates: start: 20081208
  30. OMEGACIN [Concomitant]
     Indication: INFECTION
     Route: 042
     Dates: start: 20081209, end: 20081230
  31. NOR-ADRENALIN [Concomitant]
     Route: 042
     Dates: start: 20081213, end: 20081222
  32. DENOSINE [Concomitant]
     Indication: INFECTION PROPHYLAXIS
     Route: 042
     Dates: start: 20081227, end: 20090105
  33. AMBISOME [Concomitant]
     Indication: INFECTION
     Route: 065
     Dates: start: 20081228, end: 20090109
  34. INTRALIPID 10% [Concomitant]
     Dosage: UNIT DOSE: 10 %
     Route: 042
     Dates: start: 20081230, end: 20090117
  35. UNASYN [Concomitant]
     Indication: INFECTION
     Route: 042
     Dates: start: 20090201, end: 20090209

REACTIONS (9)
  - ACUTE GRAFT VERSUS HOST DISEASE [None]
  - CANDIDA SEPSIS [None]
  - ENGRAFT FAILURE [None]
  - RENAL DISORDER [None]
  - RENAL FAILURE ACUTE [None]
  - SEPSIS [None]
  - SKIN EROSION [None]
  - SKIN ULCER [None]
  - SPLENIC ABSCESS [None]
